FAERS Safety Report 12291207 (Version 1)
Quarter: 2016Q2

REPORT INFORMATION
  Report Type: Spontaneous
  Country: US (occurrence: US)
  Receive Date: 20160421
  Receipt Date: 20160421
  Transmission Date: 20160815
  Serious: Yes (Other)
  Sender: FDA-Public Use
  Company Number: US-UNICHEM LABORATORIES LIMITED-UCM201501-000049

PATIENT
  Age: 46 Year
  Sex: Male

DRUGS (3)
  1. COCAINE [Concomitant]
     Active Substance: COCAINE
  2. CLONIDINE HCL [Suspect]
     Active Substance: CLONIDINE HYDROCHLORIDE
     Indication: HYPERTENSION
  3. LIBIDO-MAX (YOHIMBINE) [Suspect]
     Active Substance: DIETARY SUPPLEMENT
     Indication: ERECTILE DYSFUNCTION

REACTIONS (2)
  - Drug interaction [Recovered/Resolved]
  - Hypertensive crisis [Recovered/Resolved]
